FAERS Safety Report 17907995 (Version 2)
Quarter: 2020Q2

REPORT INFORMATION
  Report Type: Report from Study
  Country: BR (occurrence: BR)
  Receive Date: 20200617
  Receipt Date: 20200619
  Transmission Date: 20200714
  Serious: Yes (Other)
  Sender: FDA-Public Use
  Company Number: NVSC2020BR167360

PATIENT
  Age: 49 Year
  Sex: Male

DRUGS (5)
  1. DIOVAN [Concomitant]
     Active Substance: VALSARTAN
     Indication: PRODUCT USED FOR UNKNOWN INDICATION
     Dosage: 320/25MG
     Route: 065
     Dates: start: 202003, end: 202005
  2. GALVUS [Concomitant]
     Active Substance: VILDAGLIPTIN
     Indication: PRODUCT USED FOR UNKNOWN INDICATION
     Dosage: 160/50
     Route: 065
     Dates: end: 202002
  3. EXFORGE [Suspect]
     Active Substance: AMLODIPINE BESYLATE\VALSARTAN
     Indication: PRODUCT USED FOR UNKNOWN INDICATION
     Dosage: 160/12,5/5 (APPROXIMATELY DURING A YEAR AND 4 MONTHS)
     Route: 065
  4. LANTUS [Concomitant]
     Active Substance: INSULIN GLARGINE
     Indication: PRODUCT USED FOR UNKNOWN INDICATION
     Dosage: UNK
     Route: 065
  5. ENTRESTO [Concomitant]
     Active Substance: SACUBITRIL\VALSARTAN
     Indication: PRODUCT USED FOR UNKNOWN INDICATION
     Dosage: 97/103MG
     Route: 065
     Dates: start: 20200522

REACTIONS (12)
  - Malaise [Recovering/Resolving]
  - Oedema peripheral [Recovering/Resolving]
  - Blood glucose decreased [Recovering/Resolving]
  - Pulmonary oedema [Unknown]
  - Abdominal distension [Unknown]
  - Swelling [Unknown]
  - Fluid retention [Unknown]
  - Therapeutic response decreased [Unknown]
  - Joint swelling [Unknown]
  - Blood pressure increased [Recovering/Resolving]
  - Peripheral swelling [Unknown]
  - Cardiomegaly [Recovering/Resolving]

NARRATIVE: CASE EVENT DATE: 201906
